FAERS Safety Report 17398478 (Version 2)
Quarter: 2025Q3

REPORT INFORMATION
  Report Type: Spontaneous
  Country: EU (occurrence: EU)
  Receive Date: 20200210
  Receipt Date: 20250704
  Transmission Date: 20251021
  Serious: Yes (Other)
  Sender: MYLAN
  Company Number: EU-SA-2019SA331543

PATIENT
  Age: 4 Month
  Sex: Male

DRUGS (44)
  1. METHOTREXATE [Suspect]
     Active Substance: METHOTREXATE
     Indication: B precursor type acute leukaemia
  2. METHOTREXATE [Suspect]
     Active Substance: METHOTREXATE
     Route: 065
  3. METHOTREXATE [Suspect]
     Active Substance: METHOTREXATE
     Route: 065
  4. METHOTREXATE [Suspect]
     Active Substance: METHOTREXATE
  5. CYTARABINE [Suspect]
     Active Substance: CYTARABINE
     Indication: B precursor type acute leukaemia
  6. CYTARABINE [Suspect]
     Active Substance: CYTARABINE
     Route: 065
  7. CYTARABINE [Suspect]
     Active Substance: CYTARABINE
     Route: 065
  8. CYTARABINE [Suspect]
     Active Substance: CYTARABINE
  9. ETOPOSIDE [Suspect]
     Active Substance: ETOPOSIDE
     Indication: B precursor type acute leukaemia
  10. ETOPOSIDE [Suspect]
     Active Substance: ETOPOSIDE
     Route: 065
  11. ETOPOSIDE [Suspect]
     Active Substance: ETOPOSIDE
     Route: 065
  12. ETOPOSIDE [Suspect]
     Active Substance: ETOPOSIDE
  13. IDARUBICIN [Suspect]
     Active Substance: IDARUBICIN
     Indication: B precursor type acute leukaemia
  14. IDARUBICIN [Suspect]
     Active Substance: IDARUBICIN
     Route: 065
  15. IDARUBICIN [Suspect]
     Active Substance: IDARUBICIN
     Route: 065
  16. IDARUBICIN [Suspect]
     Active Substance: IDARUBICIN
  17. CYCLOPHOSPHAMIDE [Suspect]
     Active Substance: CYCLOPHOSPHAMIDE
     Indication: Product used for unknown indication
  18. CYCLOPHOSPHAMIDE [Suspect]
     Active Substance: CYCLOPHOSPHAMIDE
     Route: 065
  19. CYCLOPHOSPHAMIDE [Suspect]
     Active Substance: CYCLOPHOSPHAMIDE
     Route: 065
  20. CYCLOPHOSPHAMIDE [Suspect]
     Active Substance: CYCLOPHOSPHAMIDE
  21. VINCRISTINE SULFATE [Suspect]
     Active Substance: VINCRISTINE SULFATE
     Indication: B precursor type acute leukaemia
  22. VINCRISTINE SULFATE [Suspect]
     Active Substance: VINCRISTINE SULFATE
     Route: 065
  23. VINCRISTINE SULFATE [Suspect]
     Active Substance: VINCRISTINE SULFATE
     Route: 065
  24. VINCRISTINE SULFATE [Suspect]
     Active Substance: VINCRISTINE SULFATE
  25. BLINATUMOMAB [Suspect]
     Active Substance: BLINATUMOMAB
     Indication: B precursor type acute leukaemia
  26. BLINATUMOMAB [Suspect]
     Active Substance: BLINATUMOMAB
  27. BLINATUMOMAB [Suspect]
     Active Substance: BLINATUMOMAB
     Route: 065
  28. BLINATUMOMAB [Suspect]
     Active Substance: BLINATUMOMAB
     Route: 065
  29. BLINATUMOMAB [Suspect]
     Active Substance: BLINATUMOMAB
  30. BLINATUMOMAB [Suspect]
     Active Substance: BLINATUMOMAB
  31. BLINATUMOMAB [Suspect]
     Active Substance: BLINATUMOMAB
     Route: 065
  32. BLINATUMOMAB [Suspect]
     Active Substance: BLINATUMOMAB
     Route: 065
  33. PURINETHOL [Suspect]
     Active Substance: MERCAPTOPURINE
     Indication: B precursor type acute leukaemia
  34. PURINETHOL [Suspect]
     Active Substance: MERCAPTOPURINE
     Route: 065
  35. PURINETHOL [Suspect]
     Active Substance: MERCAPTOPURINE
     Route: 065
  36. PURINETHOL [Suspect]
     Active Substance: MERCAPTOPURINE
  37. CLOFARABINE [Suspect]
     Active Substance: CLOFARABINE
     Indication: B precursor type acute leukaemia
  38. CLOFARABINE [Suspect]
     Active Substance: CLOFARABINE
     Route: 065
  39. CLOFARABINE [Suspect]
     Active Substance: CLOFARABINE
     Route: 065
  40. CLOFARABINE [Suspect]
     Active Substance: CLOFARABINE
  41. FLUDARABINE PHOSPHATE [Suspect]
     Active Substance: FLUDARABINE PHOSPHATE
     Indication: B precursor type acute leukaemia
  42. FLUDARABINE PHOSPHATE [Suspect]
     Active Substance: FLUDARABINE PHOSPHATE
     Route: 065
  43. FLUDARABINE PHOSPHATE [Suspect]
     Active Substance: FLUDARABINE PHOSPHATE
     Route: 065
  44. FLUDARABINE PHOSPHATE [Suspect]
     Active Substance: FLUDARABINE PHOSPHATE

REACTIONS (8)
  - Oliguria [Recovered/Resolved]
  - Restlessness [Recovered/Resolved]
  - Dyspnoea [Recovered/Resolved]
  - Neutropenia [Unknown]
  - Fusarium infection [Recovered/Resolved]
  - Rash maculo-papular [Recovered/Resolved]
  - Pyrexia [Recovered/Resolved]
  - Off label use [Unknown]
